FAERS Safety Report 8464416 (Version 4)
Quarter: 2013Q1

REPORT INFORMATION
  Report Type: Spontaneous
  Country: US (occurrence: US)
  Receive Date: 20120319
  Receipt Date: 20130129
  Transmission Date: 20140127
  Serious: No
  Sender: FDA-Public Use
  Company Number: US-BIOGENIDEC-2012BI009105

PATIENT
  Age: 46 Year
  Sex: Female

DRUGS (4)
  1. TYSABRI [Suspect]
     Indication: MULTIPLE SCLEROSIS
     Route: 042
     Dates: start: 20101214
  2. AVONEX [Concomitant]
     Indication: MULTIPLE SCLEROSIS
     Route: 030
  3. BENADRYL [Concomitant]
     Indication: PREMEDICATION
  4. ACYCLOVIR [Concomitant]
     Indication: ANTIVIRAL PROPHYLAXIS

REACTIONS (6)
  - Eye pain [Unknown]
  - White blood cell count decreased [Unknown]
  - Immune system disorder [Unknown]
  - Rash [Unknown]
  - Herpes zoster [Recovered/Resolved]
  - Urticaria [Recovered/Resolved]
